FAERS Safety Report 4711940-8 (Version None)
Quarter: 2005Q2

REPORT INFORMATION
  Report Type: 
  Country: None (occurrence: None)
  Receive Date: 20050629
  Receipt Date: 20050307
  Transmission Date: 20051028
  Serious: No
  Sender: FDA-Public Use
  Company Number: 05P-163-0293639-00

PATIENT
  Age: 88 Year
  Sex: Female

DRUGS (11)
  1. HUMIRA [Suspect]
     Indication: RHEUMATOID ARTHRITIS
     Dosage: 40 MG, 1 IN 2 WK, SUBCUTANEOUS
     Route: 058
     Dates: start: 20041202, end: 20050301
  2. CELECOXIB [Concomitant]
  3. METHOTREXATE [Concomitant]
  4. NAPROXEN SODIUM [Concomitant]
  5. LISINOPRIL [Concomitant]
  6. ATENOLOL [Concomitant]
  7. ATORVASTATIN CALCIUM [Concomitant]
  8. GLIPIZIDE [Concomitant]
  9. FOLIC ACID [Concomitant]
  10. MULTI-VITAMINS [Concomitant]
  11. LATANOPROST [Concomitant]

REACTIONS (4)
  - HYPOAESTHESIA [None]
  - OEDEMA PERIPHERAL [None]
  - PAIN IN EXTREMITY [None]
  - PARAESTHESIA [None]
